FAERS Safety Report 7240517-8 (Version None)
Quarter: 2011Q1

REPORT INFORMATION
  Report Type: 
  Country: None (occurrence: None)
  Receive Date: 20110124
  Receipt Date: 20110114
  Transmission Date: 20110831
  Serious: Yes (Hospitalization, Disabling, Other)
  Sender: FDA-Public Use
  Company Number: US-PFIZER INC-HQWYE605128JAN04

PATIENT
  Sex: Female
  Weight: 70 kg

DRUGS (9)
  1. FEMHRT [Suspect]
     Indication: HORMONE REPLACEMENT THERAPY
     Dosage: 1MG/ 5MCG, UNK
     Route: 048
     Dates: start: 20020817, end: 20020912
  2. PREMPRO [Suspect]
     Dosage: 0.625/5.0 MG UNK
     Route: 048
     Dates: start: 19981014, end: 19990827
  3. PREMPRO [Suspect]
     Indication: HORMONE REPLACEMENT THERAPY
     Dosage: 0.625/2.5 MG UNK
     Route: 048
     Dates: start: 19960627, end: 20020816
  4. PRILOSEC [Concomitant]
     Dosage: UNK
     Dates: start: 19981027
  5. MAXALT-MLT [Concomitant]
     Indication: MIGRAINE
     Dosage: 10 MG, UNK
     Dates: start: 19990201
  6. PREVACID [Concomitant]
     Dosage: UNK
     Dates: start: 19981027
  7. NEXIUM [Concomitant]
     Dosage: 40 MG, UNK
     Dates: start: 19981027
  8. SYNTHROID [Concomitant]
     Indication: HYPOTHYROIDISM
     Dosage: 0.725 MG, UNK
     Dates: start: 19930101
  9. DIAZEPAM [Concomitant]
     Dosage: UNK
     Dates: start: 19991019

REACTIONS (1)
  - CEREBROVASCULAR ACCIDENT [None]
